FAERS Safety Report 7978501-9 (Version None)
Quarter: 2011Q4

REPORT INFORMATION
  Report Type: 
  Country: None (occurrence: None)
  Receive Date: 20111214
  Receipt Date: 20111207
  Transmission Date: 20120403
  Serious: Yes (Hospitalization, Other)
  Sender: FDA-Public Use
  Company Number: US-JNJFOC-20100805578

PATIENT
  Sex: Female
  Weight: 74.39 kg

DRUGS (6)
  1. MEDROL [Suspect]
     Indication: PRODUCT USED FOR UNKNOWN INDICATION
     Route: 048
  2. LEVAQUIN [Suspect]
     Indication: BRONCHITIS
     Route: 048
     Dates: start: 20080418, end: 20080420
  3. CIPROFLOXACIN [Suspect]
     Indication: URINARY TRACT INFECTION
     Route: 048
  4. LEVAQUIN [Suspect]
     Indication: INFECTION
     Route: 048
     Dates: start: 20080418, end: 20080420
  5. LEVAQUIN [Suspect]
     Indication: RESPIRATORY TRACT INFECTION
     Route: 048
     Dates: start: 20080418, end: 20080420
  6. ADVAIR DISKUS 100/50 [Suspect]
     Indication: PRODUCT USED FOR UNKNOWN INDICATION
     Route: 048

REACTIONS (4)
  - DEPRESSION [None]
  - PAIN [None]
  - DYSKINESIA [None]
  - TENDON RUPTURE [None]
